FAERS Safety Report 10550247 (Version 2)
Quarter: 2014Q4

REPORT INFORMATION
  Report Type: Spontaneous
  Country: AT (occurrence: AT)
  Receive Date: 20141028
  Receipt Date: 20141028
  Transmission Date: 20150529
  Serious: Yes (Hospitalization)
  Sender: FDA-Public Use
  Company Number: AT-ELI_LILLY_AND_COMPANY-AT201409006192

PATIENT
  Age: 48 Year
  Sex: Female
  Weight: 87 kg

DRUGS (4)
  1. TRITTICO [Concomitant]
     Active Substance: TRAZODONE HYDROCHLORIDE
     Indication: SLEEP DISORDER
     Dosage: 150 MG, UNKNOWN
     Route: 065
  2. CYMBALTA [Suspect]
     Active Substance: DULOXETINE HYDROCHLORIDE
     Indication: DEPRESSION
     Dosage: 60 MG, UNKNOWN
     Route: 065
     Dates: start: 20140707, end: 20140915
  3. VERTIROSAN                         /00019501/ [Concomitant]
     Indication: VERTIGO
     Dosage: UNK, UNKNOWN
     Route: 065
  4. VERTIROSAN                         /00019501/ [Concomitant]
     Indication: CERVICOBRACHIAL SYNDROME

REACTIONS (8)
  - Crying [Unknown]
  - Sleep disorder [Unknown]
  - Mood swings [Unknown]
  - Agitated depression [Unknown]
  - Fatigue [Unknown]
  - Irritability [Not Recovered/Not Resolved]
  - Restlessness [Unknown]
  - Drug withdrawal syndrome [Unknown]

NARRATIVE: CASE EVENT DATE: 20140915
